FAERS Safety Report 8657713 (Version 4)
Quarter: 2013Q1

REPORT INFORMATION
  Report Type: Spontaneous
  Country: US (occurrence: None)
  Receive Date: 20120622
  Receipt Date: 20130222
  Transmission Date: 20140127
  Serious: Yes (Other)
  Sender: FDA-Public Use
  Company Number: ACO_30724_2012

PATIENT
  Age: 42 Year
  Sex: Female

DRUGS (5)
  1. AMPYRA [Suspect]
     Indication: SECONDARY PROGRESSIVE MULTIPLE SCLEROSIS
     Dosage: 10 MG, BID
     Dates: start: 201205, end: 201205
  2. COPAXONE [Suspect]
     Indication: MULTIPLE SCLEROSIS
     Dates: start: 20120515
  3. BACLOFEN [Concomitant]
  4. TIZANIDINE HYDROCHLORIDE [Concomitant]
  5. ENABLEX /01760401/ (DARIFENACIN) [Concomitant]

REACTIONS (12)
  - Tongue biting [None]
  - Feeling abnormal [None]
  - Fatigue [None]
  - Disturbance in attention [None]
  - Dizziness [None]
  - Inappropriate schedule of drug administration [None]
  - Convulsion [None]
  - Gait disturbance [None]
  - Fall [None]
  - Balance disorder [None]
  - Headache [None]
  - Condition aggravated [None]
